FAERS Safety Report 5739426-2 (Version None)
Quarter: 2008Q2

REPORT INFORMATION
  Report Type: 
  Country: None (occurrence: None)
  Receive Date: 20080515
  Receipt Date: 20080504
  Transmission Date: 20081010
  Serious: Yes (Other)
  Sender: FDA-Public Use
  Company Number: IL-PFIZER INC-2008038877

PATIENT
  Sex: Female

DRUGS (1)
  1. LUSTRAL [Suspect]

REACTIONS (2)
  - GALACTORRHOEA [None]
  - INFERTILITY [None]
